FAERS Safety Report 4776273-2 (Version None)
Quarter: 2005Q3

REPORT INFORMATION
  Report Type: 
  Country: None (occurrence: None)
  Receive Date: 20050922
  Receipt Date: 20050913
  Transmission Date: 20060218
  Serious: Yes (Death, Hospitalization)
  Sender: FDA-Public Use
  Company Number: CA-JNJFOC-20050601730

PATIENT
  Sex: Male
  Weight: 79.8 kg

DRUGS (2)
  1. DURAGESIC-50 [Suspect]
     Route: 062
  2. DURAGESIC-50 [Suspect]
     Indication: DRUG USE FOR UNKNOWN INDICATION
     Dosage: ON THERAPY FOR SEVERAL YEARS
     Route: 062

REACTIONS (3)
  - COGNITIVE DISORDER [None]
  - DEATH [None]
  - DYSGRAPHIA [None]
